FAERS Safety Report 5691039-7 (Version None)
Quarter: 2008Q2

REPORT INFORMATION
  Report Type: 
  Country: None (occurrence: None)
  Receive Date: 20080401
  Receipt Date: 20080320
  Transmission Date: 20081010
  Serious: Yes (Other)
  Sender: FDA-Public Use
  Company Number: DE-PFIZER INC-2008018521

PATIENT
  Sex: Male
  Weight: 110 kg

DRUGS (4)
  1. SUTENT [Suspect]
     Indication: METASTATIC RENAL CELL CARCINOMA
     Route: 048
  2. BISOPROLOL FUMARATE [Concomitant]
     Route: 048
  3. TAMSULOSIN HCL [Concomitant]
  4. FUROSEMIDE [Concomitant]

REACTIONS (3)
  - FLUID RETENTION [None]
  - FREQUENT BOWEL MOVEMENTS [None]
  - PAINFUL DEFAECATION [None]
